FAERS Safety Report 23719445 (Version 2)
Quarter: 2024Q2

REPORT INFORMATION
  Report Type: Spontaneous
  Country: FR (occurrence: GF)
  Receive Date: 20240408
  Receipt Date: 20240429
  Transmission Date: 20240716
  Serious: Yes (Other)
  Sender: FDA-Public Use
  Company Number: FR-VIIV HEALTHCARE LIMITED-GF2023EME062691

PATIENT
  Age: 34 Year
  Sex: Female
  Weight: 50 kg

DRUGS (5)
  1. DEPO-PROVERA [Suspect]
     Active Substance: MEDROXYPROGESTERONE ACETATE
     Indication: Contraception
     Dosage: 1.6 MG, 1X/DAY
     Route: 065
     Dates: start: 20230316
  2. VOCABRIA [Suspect]
     Active Substance: CABOTEGRAVIR SODIUM
     Dosage: 10 MG, 1X/DAY
     Route: 065
     Dates: start: 202212
  3. VOCABRIA [Suspect]
     Active Substance: CABOTEGRAVIR SODIUM
     Dosage: 10 MG, 1X/DAY
     Route: 065
     Dates: start: 20230314
  4. RILPIVIRINE [Suspect]
     Active Substance: RILPIVIRINE
     Dosage: 15 MG, 1X/DAY
     Route: 065
     Dates: start: 202212
  5. RILPIVIRINE [Suspect]
     Active Substance: RILPIVIRINE
     Dosage: 15 MG, 1X/DAY
     Route: 065
     Dates: start: 20230316

REACTIONS (1)
  - Drug ineffective [Recovered/Resolved]

NARRATIVE: CASE EVENT DATE: 20230424
